FAERS Safety Report 9377956 (Version 2)
Quarter: 2013Q3

REPORT INFORMATION
  Report Type: Spontaneous
  Country: US (occurrence: US)
  Receive Date: 20130701
  Receipt Date: 20130722
  Transmission Date: 20140515
  Serious: No
  Sender: FDA-Public Use
  Company Number: US-ASTRAZENECA-2013SE42609

PATIENT
  Age: 43 Year
  Sex: Female
  Weight: 61.2 kg

DRUGS (3)
  1. PULMICORT FLEXHALER [Suspect]
     Indication: ASTHMA
     Dosage: 2 PUFFS, TWO TIMES A DAY
     Route: 055
  2. PULMICORT FLEXHALER [Suspect]
     Indication: ASTHMA
     Dosage: FREQUENCY: AS REQUIRED
     Route: 055
  3. ATRIPLA [Concomitant]

REACTIONS (2)
  - Malaise [Unknown]
  - Intentional drug misuse [Unknown]
